FAERS Safety Report 7478218-3 (Version None)
Quarter: 2011Q2

REPORT INFORMATION
  Report Type: 
  Country: None (occurrence: None)
  Receive Date: 20110513
  Receipt Date: 20110504
  Transmission Date: 20111010
  Serious: Yes (Other)
  Sender: FDA-Public Use
  Company Number: PHHY2011BE37359

PATIENT
  Age: 18 Year
  Sex: Male

DRUGS (1)
  1. TASIGNA [Suspect]
     Dosage: UNK
     Dates: end: 20110504

REACTIONS (4)
  - SUICIDE ATTEMPT [None]
  - SOMNOLENCE [None]
  - TOXICITY TO VARIOUS AGENTS [None]
  - INTENTIONAL OVERDOSE [None]
